FAERS Safety Report 23147464 (Version 1)
Quarter: 2023Q4

REPORT INFORMATION
  Report Type: Spontaneous
  Country: TR (occurrence: TR)
  Receive Date: 20231106
  Receipt Date: 20231106
  Transmission Date: 20240109
  Serious: Yes (Other)
  Sender: FDA-Public Use
  Company Number: TR-JUBILANT CADISTA PHARMACEUTICALS-2023TR001337

PATIENT
  Age: 16 Year
  Sex: Male

DRUGS (2)
  1. OLANZAPINE [Suspect]
     Active Substance: OLANZAPINE
     Indication: Schizophrenia
     Dosage: 20 MG, ONCE PER DAY
  2. OLANZAPINE [Suspect]
     Active Substance: OLANZAPINE
     Dosage: UNK

REACTIONS (1)
  - Generalised tonic-clonic seizure [Unknown]
